FAERS Safety Report 10251031 (Version 1)
Quarter: 2014Q2

REPORT INFORMATION
  Report Type: Spontaneous
  Country: CA (occurrence: CA)
  Receive Date: 20140620
  Receipt Date: 20140620
  Transmission Date: 20141212
  Serious: Yes (Death, Hospitalization)
  Sender: FDA-Public Use
  Company Number: CA-B.I. PHARMACEUTICALS,INC./RIDGEFIELD-2014-BI-27817CN

PATIENT
  Age: 8 Decade
  Sex: Male

DRUGS (2)
  1. SPIRIVA [Suspect]
     Indication: PRODUCT USED FOR UNKNOWN INDICATION
     Dosage: 18 MCG
     Route: 055
     Dates: start: 2011
  2. CLINDAMYCIN [Concomitant]
     Route: 055

REACTIONS (3)
  - Pneumonia aspiration [Fatal]
  - Pneumonia [Unknown]
  - Oropharyngeal pain [Unknown]
